FAERS Safety Report 12124242 (Version 1)
Quarter: 2016Q1

REPORT INFORMATION
  Report Type: Spontaneous
  Country: US (occurrence: None)
  Receive Date: 20160226
  Receipt Date: 20160226
  Transmission Date: 20160526
  Serious: No
  Sender: FDA-Public Use
  Company Number: None

PATIENT
  Age: 33 Year
  Sex: Female
  Weight: 63.5 kg

DRUGS (11)
  1. IRON [Concomitant]
     Active Substance: IRON
  2. BIOTIN [Concomitant]
     Active Substance: BIOTIN
  3. FLAXSEED [Concomitant]
     Active Substance: FLAX SEED
  4. BUPROPION. [Suspect]
     Active Substance: BUPROPION
     Indication: POST-TRAUMATIC STRESS DISORDER
     Dosage: 1 PILL ONCE DAILY TAKEN BY MOUTH
     Route: 048
     Dates: start: 20080201, end: 20160211
  5. PRIMROSE EVENING [Concomitant]
  6. CHIA SEEDS [Concomitant]
     Active Substance: OMEGA-3 FATTY ACIDS
  7. BCAA [Concomitant]
  8. CALCIUM [Concomitant]
     Active Substance: CALCIUM
  9. PROTEIN [Concomitant]
     Active Substance: PROTEIN
  10. PRENATAL PILL [Concomitant]
  11. LEMON BALM [Concomitant]

REACTIONS (3)
  - Rash macular [None]
  - Alopecia [None]
  - Chloasma [None]

NARRATIVE: CASE EVENT DATE: 20080207
